FAERS Safety Report 5268009-6 (Version None)
Quarter: 2007Q1

REPORT INFORMATION
  Report Type: 
  Country: None (occurrence: None)
  Receive Date: 20061213
  Receipt Date: 20040728
  Transmission Date: 20070707
  Serious: Yes (Other)
  Sender: FDA-Public Use
  Company Number: 2004UW16299

PATIENT
  Age: 79 Year
  Sex: Male
  Weight: 74.8435 kg

DRUGS (4)
  1. IRESSA [Suspect]
     Indication: LUNG NEOPLASM MALIGNANT
     Dates: start: 20040723
  2. IMODIUM [Concomitant]
  3. VITAMIN CAP [Concomitant]
  4. ENZYME TO BREAK DOWN FOOD [Concomitant]

REACTIONS (1)
  - MELAENA [None]
